FAERS Safety Report 14143282 (Version 2)
Quarter: 2017Q4

REPORT INFORMATION
  Report Type: Spontaneous
  Country: EG (occurrence: EG)
  Receive Date: 20171030
  Receipt Date: 20171101
  Transmission Date: 20180321
  Serious: Yes (Death)
  Sender: FDA-Public Use
  Company Number: EG-SA-2017SA210228

PATIENT
  Sex: Male
  Weight: 13 kg

DRUGS (1)
  1. CEREZYME [Suspect]
     Active Substance: IMIGLUCERASE
     Indication: GAUCHER^S DISEASE TYPE III
     Dosage: DOSE:60 UNIT(S)/KILOGRAM BODYWEIGHT
     Route: 041
     Dates: start: 20161124, end: 20170812

REACTIONS (2)
  - Malnutrition [Fatal]
  - Nervous system disorder [Fatal]

NARRATIVE: CASE EVENT DATE: 2017
